FAERS Safety Report 5273668-8 (Version None)
Quarter: 2007Q1

REPORT INFORMATION
  Report Type: 
  Country: None (occurrence: None)
  Receive Date: 20070321
  Receipt Date: 20070321
  Transmission Date: 20070707
  Serious: No
  Sender: FDA-Public Use
  Company Number: None

PATIENT
  Age: 54 Year
  Sex: Female

DRUGS (1)
  1. COMBIPATCH [Suspect]
     Indication: MENOPAUSAL SYMPTOMS
     Dosage: APPLY 1 PATCH TWICE WEEKLY

REACTIONS (3)
  - DRUG INEFFECTIVE [None]
  - MENORRHAGIA [None]
  - PHARMACEUTICAL PRODUCT COMPLAINT [None]
